FAERS Safety Report 4655634-6 (Version None)
Quarter: 2005Q2

REPORT INFORMATION
  Report Type: 
  Country: None (occurrence: None)
  Receive Date: 20050505
  Receipt Date: 20050422
  Transmission Date: 20051028
  Serious: Yes (Hospitalization, Other)
  Sender: FDA-Public Use
  Company Number: KII-2005-0016300

PATIENT
  Age: 10 Month
  Sex: Female

DRUGS (1)
  1. OXYCONTIN [Suspect]

REACTIONS (12)
  - ACCIDENTAL DRUG INTAKE BY CHILD [None]
  - APNOEA [None]
  - ASTHENIA [None]
  - CONVULSION [None]
  - HEAD LAG ABNORMAL [None]
  - HYPOTONIA [None]
  - LETHARGY [None]
  - MIOSIS [None]
  - OXYGEN SATURATION DECREASED [None]
  - PALLOR [None]
  - PULSE PRESSURE INCREASED [None]
  - SOMNOLENCE [None]
